FAERS Safety Report 13486484 (Version 1)
Quarter: 2017Q2

REPORT INFORMATION
  Report Type: Spontaneous
  Country: IT (occurrence: IT)
  Receive Date: 20170426
  Receipt Date: 20170426
  Transmission Date: 20170830
  Serious: Yes (Other)
  Sender: FDA-Public Use
  Company Number: IT-JNJFOC-20170423089

PATIENT
  Sex: Female

DRUGS (6)
  1. CAELYX [Suspect]
     Active Substance: DOXORUBICIN HYDROCHLORIDE
     Indication: METASTASES TO OVARY
     Route: 065
  2. CARBOPLATIN. [Suspect]
     Active Substance: CARBOPLATIN
     Indication: METASTASES TO OVARY
     Route: 065
  3. CARBOPLATIN. [Suspect]
     Active Substance: CARBOPLATIN
     Indication: METASTASES TO UTERUS
     Route: 065
  4. TAXOL [Suspect]
     Active Substance: PACLITAXEL
     Indication: METASTASES TO OVARY
     Route: 065
  5. TAXOL [Suspect]
     Active Substance: PACLITAXEL
     Indication: METASTASES TO UTERUS
     Route: 065
  6. CAELYX [Suspect]
     Active Substance: DOXORUBICIN HYDROCHLORIDE
     Indication: METASTASES TO UTERUS
     Route: 065

REACTIONS (1)
  - Gastrointestinal erosion [Unknown]
